FAERS Safety Report 14046305 (Version 6)
Quarter: 2018Q4

REPORT INFORMATION
  Report Type: Report from Study
  Country: IE (occurrence: IE)
  Receive Date: 20171005
  Receipt Date: 20181025
  Transmission Date: 20190204
  Serious: Yes (Other)
  Sender: FDA-Public Use
  Company Number: IE-JNJFOC-20171002740

PATIENT
  Age: 49 Year
  Sex: Female

DRUGS (3)
  1. STELARA [Suspect]
     Active Substance: USTEKINUMAB
     Indication: PSORIASIS
     Route: 058
     Dates: start: 201212
  2. MIRENA [Concomitant]
     Active Substance: LEVONORGESTREL
     Route: 065
  3. STELARA [Suspect]
     Active Substance: USTEKINUMAB
     Indication: PSORIASIS
     Route: 058
     Dates: start: 20150608

REACTIONS (7)
  - Underdose [Unknown]
  - Needle issue [Unknown]
  - Psoriasis [Recovered/Resolved]
  - Product dose omission [Unknown]
  - Iliotibial band syndrome [Recovered/Resolved]
  - Lower respiratory tract infection [Recovered/Resolved]
  - Product container issue [Unknown]

NARRATIVE: CASE EVENT DATE: 2015
